FAERS Safety Report 10280882 (Version 1)
Quarter: 2014Q3

REPORT INFORMATION
  Report Type: Spontaneous
  Country: US (occurrence: None)
  Receive Date: 20140702
  Receipt Date: 20140702
  Transmission Date: 20150326
  Serious: Yes (Death, Other)
  Sender: FDA-Public Use
  Company Number: None

PATIENT
  Age: 34 Year
  Sex: Female
  Weight: 97.52 kg

DRUGS (2)
  1. GLUCOLA [Suspect]
     Active Substance: DEXTROSE
     Indication: LABORATORY TEST
     Dosage: 1 BOTTLE ?1 TIME?BY MOUTH
     Route: 048
  2. PRENATAL VITAMINS [Concomitant]
     Active Substance: VITAMINS

REACTIONS (5)
  - Malaise [None]
  - Foetal disorder [None]
  - Maternal exposure during pregnancy [None]
  - Foetal death [None]
  - Maternal drugs affecting foetus [None]

NARRATIVE: CASE EVENT DATE: 20130813
